FAERS Safety Report 22307532 (Version 1)
Quarter: 2023Q2

REPORT INFORMATION
  Report Type: Spontaneous
  Country: US (occurrence: None)
  Receive Date: 20230511
  Receipt Date: 20230511
  Transmission Date: 20230721
  Serious: Yes (Other)
  Sender: FDA-Public Use
  Company Number: US-ROCHE-3124662

PATIENT
  Age: 37 Year
  Sex: Male
  Weight: 68.100 kg

DRUGS (1)
  1. OCRELIZUMAB [Suspect]
     Active Substance: OCRELIZUMAB
     Indication: Multiple sclerosis
     Route: 065

REACTIONS (3)
  - Chills [Unknown]
  - Lymphopenia [Recovered/Resolved]
  - Neutropenia [Recovered/Resolved]
